FAERS Safety Report 8624229-1 (Version None)
Quarter: 2012Q3

REPORT INFORMATION
  Report Type: 
  Country: None (occurrence: None)
  Receive Date: 20120824
  Receipt Date: 20120824
  Transmission Date: 20120928
  Serious: Yes (Life-Threatening, Other)
  Sender: FDA-Public Use
  Company Number: None

PATIENT

DRUGS (1)
  1. THYROID TAB [Suspect]
     Indication: HYPOTHYROIDISM
     Dates: start: 20120712, end: 20120822

REACTIONS (4)
  - VITAMIN D DEFICIENCY [None]
  - HYPOTHYROIDISM [None]
  - CONDITION AGGRAVATED [None]
  - PRODUCT FORMULATION ISSUE [None]
